FAERS Safety Report 5905958-7 (Version None)
Quarter: 2008Q4

REPORT INFORMATION
  Report Type: 
  Country: None (occurrence: None)
  Receive Date: 20081002
  Receipt Date: 20080922
  Transmission Date: 20090506
  Serious: Yes (Hospitalization)
  Sender: FDA-Public Use
  Company Number: JP-MERCK-0809USA02818

PATIENT
  Age: 60 Year
  Sex: Male

DRUGS (4)
  1. SINGULAIR [Suspect]
     Indication: ASTHMA
     Route: 048
     Dates: start: 20080101
  2. [THERAPY UNSPECIFIED] [Concomitant]
     Indication: ASTHMA
     Dates: start: 20060501
  3. [THERAPY UNSPECIFIED] [Concomitant]
     Route: 048
     Dates: start: 20060501
  4. [THERAPY UNSPECIFIED] [Concomitant]
     Route: 065
     Dates: start: 20080101

REACTIONS (1)
  - ALLERGIC GRANULOMATOUS ANGIITIS [None]
